FAERS Safety Report 15902828 (Version 8)
Quarter: 2025Q4

REPORT INFORMATION
  Report Type: Spontaneous
  Country: EU (occurrence: EU)
  Receive Date: 20190202
  Receipt Date: 20251207
  Transmission Date: 20260118
  Serious: Yes (Hospitalization, Other)
  Sender: AUROBINDO
  Company Number: EU-AUROBINDO-AUR-APL-2019-002022

PATIENT
  Age: 25 Year
  Sex: Male

DRUGS (28)
  1. AZITHROMYCIN [Suspect]
     Active Substance: AZITHROMYCIN
     Indication: Urticaria
     Dosage: 500 MILLIGRAM, ONCE A DAY (500 MG, QD)
     Route: 065
     Dates: start: 20160203, end: 20160209
  2. AZITHROMYCIN [Suspect]
     Active Substance: AZITHROMYCIN
     Indication: Chronic spontaneous urticaria
  3. DESLORATADINE [Suspect]
     Active Substance: DESLORATADINE
     Indication: Urticaria
     Dosage: 5 MILLIGRAM, ONCE A DAY
     Route: 065
     Dates: start: 201601, end: 201601
  4. BILASTINE [Suspect]
     Active Substance: BILASTINE
     Indication: Chronic spontaneous urticaria
     Dosage: 60 MILLIGRAM
     Route: 065
  5. BILASTINE [Suspect]
     Active Substance: BILASTINE
     Indication: Urticaria chronic
     Dosage: 20 MILLIGRAM, ONCE A DAY
     Route: 065
     Dates: start: 201601, end: 201601
  6. BILASTINE [Suspect]
     Active Substance: BILASTINE
     Dosage: 40 MILLIGRAM, ONCE A DAY (40 MG, QD)
     Dates: start: 201601, end: 20160226
  7. BILASTINE [Suspect]
     Active Substance: BILASTINE
     Dosage: 60 MILLIGRAM, ONCE A DAY (60 MG, QD)
     Route: 065
     Dates: start: 20160226
  8. BILASTINE [Suspect]
     Active Substance: BILASTINE
     Dosage: 40 MILLIGRAM, ONCE A DAY
     Dates: start: 201612
  9. BILASTINE [Suspect]
     Active Substance: BILASTINE
     Dosage: 20 MILLIGRAM, ONCE A DAY (20 MG, QD)
     Route: 065
     Dates: start: 2016, end: 2016
  10. BILASTINE [Suspect]
     Active Substance: BILASTINE
     Dosage: 60 MILLIGRAM, ONCE A DAY (60 MG, QD)
     Dates: start: 201602
  11. BILASTINE [Suspect]
     Active Substance: BILASTINE
     Dosage: 40 MILLIGRAM, ONCE A DAY
     Dates: start: 201602
  12. PREDNISONE [Suspect]
     Active Substance: PREDNISONE
     Indication: Urticaria
     Dosage: 60 MILLIGRAM, ONCE A DAY
     Route: 065
     Dates: start: 20160212, end: 20160225
  13. PREDNISONE [Suspect]
     Active Substance: PREDNISONE
     Indication: Chronic spontaneous urticaria
     Dosage: 40 MILLIGRAM, ONCE A DAY
     Dates: start: 20160226
  14. PREDNISONE [Suspect]
     Active Substance: PREDNISONE
     Dosage: 10 MILLIGRAM, ONCE A DAY
     Dates: start: 2016
  15. PREDNISONE [Suspect]
     Active Substance: PREDNISONE
     Dosage: 10 MILLIGRAM, ONCE A DAY (10 MG, QD)
     Dates: start: 201612
  16. PREDNISONE [Suspect]
     Active Substance: PREDNISONE
     Dosage: 10 MILLIGRAM, ONCE A DAY
  17. AMOXICILLIN [Suspect]
     Active Substance: AMOXICILLIN
     Indication: Urticaria
     Dosage: 1 GRAM, TWO TIMES A DAY (2 G, QD, 1 GRAM, TWO TIMES A DAY, START DATE: 26-FEB-2016)
     Dates: start: 20160226
  18. AMOXICILLIN [Suspect]
     Active Substance: AMOXICILLIN
     Indication: Chronic spontaneous urticaria
  19. XOLAIR [Suspect]
     Active Substance: OMALIZUMAB
     Indication: Urticaria
     Dosage: 1 GRAM FOR 1 HOUR (1 G FOR 1 HOUR (TABLET)
  20. XOLAIR [Suspect]
     Active Substance: OMALIZUMAB
     Indication: Chronic spontaneous urticaria
     Dosage: UNK
     Route: 065
  21. XOLAIR [Suspect]
     Active Substance: OMALIZUMAB
     Dosage: UNK UNK, CYCLICAL
     Route: 065
  22. DIPROPHOS [Concomitant]
     Active Substance: BETAMETHASONE DIPROPIONATE\BETAMETHASONE SODIUM PHOSPHATE
     Indication: Chronic spontaneous urticaria
     Dosage: 1 MILLILITER
  23. DIPROPHOS [Concomitant]
     Active Substance: BETAMETHASONE DIPROPIONATE\BETAMETHASONE SODIUM PHOSPHATE
     Indication: Urticaria
     Dosage: 1 MILLILITER
  24. BISULEPIN HYDROCHLORIDE [Concomitant]
     Active Substance: BISULEPIN HYDROCHLORIDE
     Indication: Product used for unknown indication
     Dosage: UNK
     Route: 065
  25. BETAMETHASONE [Concomitant]
     Active Substance: BETAMETHASONE
     Indication: Chronic spontaneous urticaria
     Dosage: UNK
  26. BETAMETHASONE [Concomitant]
     Active Substance: BETAMETHASONE
     Indication: Urticaria
     Dosage: UNK
  27. XOLAIR [Concomitant]
     Active Substance: OMALIZUMAB
     Indication: Chronic spontaneous urticaria
     Dosage: UNK, CYCLICAL
     Route: 065
  28. XOLAIR [Concomitant]
     Active Substance: OMALIZUMAB
     Indication: Urticaria
     Dosage: UNK
     Route: 065

REACTIONS (14)
  - Oropharyngeal discomfort [Recovered/Resolved]
  - Nausea [Recovered/Resolved]
  - Abdominal pain lower [Recovered/Resolved]
  - Leukocytosis [Unknown]
  - Polycythaemia [Unknown]
  - Rash vesicular [Recovering/Resolving]
  - Rash [Recovering/Resolving]
  - Dysphagia [Recovering/Resolving]
  - Disease recurrence [Recovering/Resolving]
  - Pruritus [Recovering/Resolving]
  - Chronic spontaneous urticaria [Recovering/Resolving]
  - Drug ineffective [Recovered/Resolved]
  - Prescribed overdose [Unknown]
  - Off label use [Unknown]

NARRATIVE: CASE EVENT DATE: 20160101
